FAERS Safety Report 4761698-1 (Version None)
Quarter: 2005Q3

REPORT INFORMATION
  Report Type: 
  Country: None (occurrence: None)
  Receive Date: 20050826
  Receipt Date: 20041222
  Transmission Date: 20060218
  Serious: Yes (Death)
  Sender: FDA-Public Use
  Company Number: USA-2004-0018136

PATIENT
  Age: 18 Year
  Sex: Male

DRUGS (5)
  1. OXYCONTIN [Suspect]
     Dosage: UNKNOWN
     Route: 065
  2. OXYCODONE HCL [Suspect]
     Dosage: UNKNOWN
     Route: 065
  3. COCAINE (COCAINE) [Suspect]
     Dosage: UNKNOWN
     Route: 065
  4. METHADONE HCL [Suspect]
     Dosage: UNKNOWN
     Route: 065
  5. MEPERIDINE HCL [Suspect]
     Dosage: UNKNOWN
     Route: 065

REACTIONS (3)
  - MULTIPLE DRUG OVERDOSE ACCIDENTAL [None]
  - OVERDOSE [None]
  - POLYSUBSTANCE ABUSE [None]
